FAERS Safety Report 4359374-2 (Version None)
Quarter: 2004Q2

REPORT INFORMATION
  Report Type: 
  Country: None (occurrence: None)
  Receive Date: 20040512
  Receipt Date: 20040427
  Transmission Date: 20050107
  Serious: Yes (Hospitalization)
  Sender: FDA-Public Use
  Company Number: ATO-04-0372

PATIENT
  Age: 67 Year
  Sex: Male

DRUGS (2)
  1. TRISENOX [Suspect]
     Indication: ACUTE MYELOID LEUKAEMIA
     Dosage: IVI
     Route: 042
     Dates: start: 20040408, end: 20040408
  2. CYTOSINE ARABINOSIDE [Suspect]
     Indication: ACUTE MYELOID LEUKAEMIA
     Dates: start: 20040408, end: 20040408

REACTIONS (10)
  - ALANINE AMINOTRANSFERASE INCREASED [None]
  - ASPARTATE AMINOTRANSFERASE INCREASED [None]
  - CHEST PAIN [None]
  - EJECTION FRACTION DECREASED [None]
  - HYPOTENSION [None]
  - LIVER FUNCTION TEST ABNORMAL [None]
  - LUNG CONSOLIDATION [None]
  - NEUTROPENIA [None]
  - PLEURAL EFFUSION [None]
  - VENTRICULAR TACHYCARDIA [None]
